FAERS Safety Report 8953008 (Version 2)
Quarter: 2014Q1

REPORT INFORMATION
  Report Type: Report from Study
  Country: NL (occurrence: NL)
  Receive Date: 20121205
  Receipt Date: 20140217
  Transmission Date: 20141002
  Serious: Yes (Death)
  Sender: FDA-Public Use
  Company Number: PHHY2012NL111438

PATIENT
  Sex: Male

DRUGS (9)
  1. ZOMETA [Suspect]
     Indication: PROSTATE CANCER METASTATIC
     Dosage: 4 MG/100ML, EVERY 28 DAYS
  2. ZOMETA [Suspect]
     Dosage: 4 MG/100ML, EVERY 28 DAYS
     Route: 042
     Dates: start: 20120103
  3. ZOMETA [Suspect]
     Dosage: 4 MG/100ML, EVERY 28 DAYS
     Route: 042
     Dates: start: 20120801
  4. ZOMETA [Suspect]
     Dosage: 4 MG/100ML, EVERY 28 DAYS
     Route: 042
     Dates: start: 20121016
  5. ZOMETA [Suspect]
     Dosage: 4 MG/100ML, EVERY 28 DAYS
     Route: 042
     Dates: start: 20121113
  6. CALCIUM D3 [Concomitant]
     Dosage: 1 DF,1 DD 100 MG/800 IE
  7. NEXIUM [Concomitant]
     Dosage: 40 MG, QD
  8. PREDNISOLONE [Concomitant]
     Dosage: 5 MG, BID
  9. ZOLADEX [Concomitant]
     Dosage: UNK UKN, UNK

REACTIONS (1)
  - Cardiac disorder [Fatal]
